FAERS Safety Report 18948728 (Version 1)
Quarter: 2021Q1

REPORT INFORMATION
  Report Type: Other
  Country: US (occurrence: US)
  Receive Date: 20210226
  Receipt Date: 20210226
  Transmission Date: 20210420
  Serious: No
  Sender: FDA-Public Use
  Company Number: US-ROCHE-2528646

PATIENT
  Age: 74 Year
  Sex: Female

DRUGS (4)
  1. NIACINAMIDE [Concomitant]
     Active Substance: NIACINAMIDE
  2. DOXYCYCLINE. [Concomitant]
     Active Substance: DOXYCYCLINE
  3. OMALIZUMAB. [Suspect]
     Active Substance: OMALIZUMAB
     Indication: PEMPHIGOID
     Route: 058
  4. CLOBETASOL [Concomitant]
     Active Substance: CLOBETASOL

REACTIONS (3)
  - Injection site dermatitis [Recovered/Resolved]
  - Intentional product use issue [Unknown]
  - Off label use [Unknown]
